FAERS Safety Report 9920285 (Version 2)
Quarter: 2014Q1

REPORT INFORMATION
  Report Type: Report from Study
  Country: AU (occurrence: AU)
  Receive Date: 20140224
  Receipt Date: 20140224
  Transmission Date: 20141002
  Serious: Yes (Other)
  Sender: FDA-Public Use
  Company Number: PHHY2011AU118756

PATIENT
  Age: 68 Year
  Sex: Female

DRUGS (11)
  1. ACLASTA [Suspect]
     Indication: OSTEOPOROSIS
     Dosage: 5 MG, UNK
     Route: 042
     Dates: start: 20110106
  2. ACLASTA [Suspect]
     Dosage: 5 MG, UNK
     Route: 042
     Dates: start: 20110830
  3. ACLASTA [Suspect]
     Dosage: 5 MG, UNK
     Route: 042
     Dates: start: 20121119
  4. CARBIMAZOLE [Concomitant]
     Dosage: 5 MG, UNK
  5. METHOTREXATE [Concomitant]
     Dosage: 10 MG, TUESDAY
  6. FOLIC ACID [Concomitant]
     Dosage: 5 MG, FRIDAY
  7. CALTRATE D                         /00944201/ [Concomitant]
     Dosage: 1 DF, UNK
  8. PREDNISOLONE [Concomitant]
     Dosage: 2 MG, UNK
  9. PREDNISOLONE [Concomitant]
     Dosage: LOW DOSE
  10. PARACETAMOL [Concomitant]
     Dosage: UNK UKN, UNK
  11. FISH OIL [Concomitant]
     Dosage: UNK UKN, UNK

REACTIONS (12)
  - Small cell lung cancer limited stage [Unknown]
  - Fracture [Unknown]
  - Rheumatoid arthritis [Unknown]
  - Joint swelling [Unknown]
  - Joint crepitation [Unknown]
  - Circulatory collapse [Unknown]
  - Hyperthyroidism [Unknown]
  - Adrenal insufficiency [Unknown]
  - Pulmonary embolism [Unknown]
  - Syncope [Unknown]
  - Inappropriate schedule of drug administration [Recovered/Resolved]
  - Hypotension [Unknown]
